FAERS Safety Report 14284060 (Version 1)
Quarter: 2017Q4

REPORT INFORMATION
  Report Type: Spontaneous
  Country: US (occurrence: None)
  Receive Date: 20171214
  Receipt Date: 20171214
  Transmission Date: 20180321
  Serious: No
  Sender: FDA-Public Use
  Company Number: None

PATIENT
  Sex: Female
  Weight: 54.43 kg

DRUGS (1)
  1. MIRENA [Suspect]
     Active Substance: LEVONORGESTREL

REACTIONS (21)
  - Depression [None]
  - Loss of libido [None]
  - Vaginal haemorrhage [None]
  - Acne cystic [None]
  - Headache [None]
  - Unevaluable event [None]
  - Mood altered [None]
  - Chest pain [None]
  - Pelvic pain [None]
  - Weight increased [None]
  - Pollakiuria [None]
  - Pruritus [None]
  - Skin disorder [None]
  - Erythema [None]
  - Feeling abnormal [None]
  - Abdominal pain [None]
  - Dry skin [None]
  - Vision blurred [None]
  - Visual impairment [None]
  - Mucous membrane disorder [None]
  - Emotional disorder [None]

NARRATIVE: CASE EVENT DATE: 20170309
